FAERS Safety Report 5765090-2 (Version None)
Quarter: 2008Q2

REPORT INFORMATION
  Report Type: 
  Country: None (occurrence: None)
  Receive Date: 20080605
  Receipt Date: 20080530
  Transmission Date: 20081010
  Serious: Yes (Death, Hospitalization)
  Sender: FDA-Public Use
  Company Number: 2008AL005685

PATIENT
  Age: 93 Year
  Sex: Female
  Weight: 45.3597 kg

DRUGS (1)
  1. DIGOXIN [Suspect]
     Indication: CARDIAC DISORDER

REACTIONS (3)
  - EATING DISORDER [None]
  - NAUSEA [None]
  - PAIN [None]
